FAERS Safety Report 8782522 (Version 1)
Quarter: 2012Q4

REPORT INFORMATION
  Report Type: Report from Study
  Country: US (occurrence: US)
  Receive Date: 20120913
  Receipt Date: 20120913
  Transmission Date: 20130627
  Serious: No
  Sender: FDA-Public Use
  Company Number: US-VERTEX PHARMACEUTICAL INC.-AE-2012-010275

PATIENT

DRUGS (5)
  1. INCIVEK [Suspect]
     Indication: HEPATITIS C
     Route: 048
  2. RIBAVIRIN [Concomitant]
     Indication: HEPATITIS C
  3. PEGASYS INJ PROCLICK [Concomitant]
     Indication: HEPATITIS C
  4. RANITIDINE [Concomitant]
  5. VALTREX [Concomitant]

REACTIONS (1)
  - Rash generalised [Unknown]
